FAERS Safety Report 9604187 (Version 1)
Quarter: 2013Q4

REPORT INFORMATION
  Report Type: Spontaneous
  Country: IT (occurrence: IT)
  Receive Date: 20131008
  Receipt Date: 20131008
  Transmission Date: 20140711
  Serious: Yes (Hospitalization)
  Sender: FDA-Public Use
  Company Number: IT-JNJFOC-20131000932

PATIENT
  Age: 38 Year
  Sex: Male

DRUGS (1)
  1. TOPAMAX [Suspect]
     Indication: DRUG ABUSE
     Dosage: 15 TABLETS OF 25 MG.
     Route: 048
     Dates: start: 20130629, end: 20130629

REACTIONS (2)
  - Drug abuse [Recovered/Resolved]
  - Intentional overdose [Unknown]
